FAERS Safety Report 23065375 (Version 1)
Quarter: 2023Q4

REPORT INFORMATION
  Report Type: Spontaneous
  Country: US (occurrence: US)
  Receive Date: 20231013
  Receipt Date: 20231013
  Transmission Date: 20240110
  Serious: No
  Sender: FDA-Public Use
  Company Number: US-PFIZER INC-PV202300109288

PATIENT
  Age: 41 Year
  Sex: Female

DRUGS (6)
  1. DOCETAXEL [Suspect]
     Active Substance: DOCETAXEL
     Indication: HER2 positive breast cancer
     Dosage: 161 MG, SINGLE (1 CYCLE ONLY)
     Dates: start: 20190604, end: 20190604
  2. DOCETAXEL [Suspect]
     Active Substance: DOCETAXEL
     Indication: Thymoma
  3. DOCETAXEL [Suspect]
     Active Substance: DOCETAXEL
     Indication: HER2 positive breast cancer
     Dosage: 161 MG, SINGLE (1 CYCLE ONLY)
     Dates: start: 20190604, end: 20190604
  4. DOCETAXEL [Suspect]
     Active Substance: DOCETAXEL
     Indication: Thymoma
  5. TOPOTECAN [Concomitant]
     Active Substance: TOPOTECAN HYDROCHLORIDE
     Indication: Chemotherapy
     Dosage: UNK
  6. VINBLASTINE [Concomitant]
     Active Substance: VINBLASTINE
     Indication: Chemotherapy
     Dosage: UNK

REACTIONS (3)
  - Lacrimation increased [Not Recovered/Not Resolved]
  - Lacrimal structure injury [Not Recovered/Not Resolved]
  - Post-traumatic stress disorder [Unknown]

NARRATIVE: CASE EVENT DATE: 20190614
